FAERS Safety Report 4963661-4 (Version None)
Quarter: 2006Q1

REPORT INFORMATION
  Report Type: 
  Country: None (occurrence: None)
  Receive Date: 20060330
  Receipt Date: 20060329
  Transmission Date: 20060701
  Serious: Yes (Life-Threatening)
  Sender: FDA-Public Use
  Company Number: 200610348BYL

PATIENT
  Sex: Male

DRUGS (5)
  1. CIPROFLOXACIN [Suspect]
     Indication: PNEUMONIA
     Dosage: 600 MG, TOTAL DAILY, INTRAVENOUS DRIP
     Route: 041
     Dates: start: 20060303, end: 20060306
  2. OMEGACIN [Concomitant]
  3. INOVAN [Concomitant]
  4. BISOLVON [Concomitant]
  5. HEPARIN SODIUM [Concomitant]

REACTIONS (2)
  - HYPOGLYCAEMIA [None]
  - RESPIRATORY FAILURE [None]
